FAERS Safety Report 17870749 (Version 2)
Quarter: 2020Q2

REPORT INFORMATION
  Report Type: Spontaneous
  Country: US (occurrence: US)
  Receive Date: 20200608
  Receipt Date: 20200623
  Transmission Date: 20200714
  Serious: No
  Sender: FDA-Public Use
  Company Number: US-VERTEX PHARMACEUTICALS-2020-012280

PATIENT
  Age: 11 Year
  Sex: Female

DRUGS (3)
  1. BETHKIS [Concomitant]
     Active Substance: TOBRAMYCIN
  2. FERROUS SULPHATE [FERROUS SULFATE] [Concomitant]
     Active Substance: FERROUS SULFATE
  3. TRIKAFTA [Suspect]
     Active Substance: ELEXACAFTOR\IVACAFTOR\TEZACAFTOR
     Indication: CYSTIC FIBROSIS
     Dosage: (200MG ELEXACAFTOR/150MG TEZACAFTOR/100MG IVACAFTOR)AM AND (150MG IVACAFTOR)PM
     Route: 048
     Dates: start: 20200601

REACTIONS (2)
  - Diarrhoea [Unknown]
  - Off label use [Unknown]

NARRATIVE: CASE EVENT DATE: 20200601
